FAERS Safety Report 18914613 (Version 2)
Quarter: 2021Q3

REPORT INFORMATION
  Report Type: Spontaneous
  Country: US (occurrence: US)
  Receive Date: 20210218
  Receipt Date: 20210701
  Transmission Date: 20211014
  Serious: Yes (Hospitalization)
  Sender: FDA-Public Use
  Company Number: US-TEVA-2021-US-1879682

PATIENT
  Age: 16 Year
  Sex: Female

DRUGS (2)
  1. CYTOXAN [Suspect]
     Active Substance: CYCLOPHOSPHAMIDE
     Indication: CONGENITAL RETINOBLASTOMA
     Dosage: CHEMOREDUCTION THERAPY
     Route: 065
  2. VINCRISTINE [Suspect]
     Active Substance: VINCRISTINE
     Indication: CONGENITAL RETINOBLASTOMA
     Dosage: CHEMOREDUCTION THERAPY
     Route: 065

REACTIONS (2)
  - Maculopathy [Recovering/Resolving]
  - Cystoid macular oedema [Recovering/Resolving]
